FAERS Safety Report 7900269-2 (Version None)
Quarter: 2011Q4

REPORT INFORMATION
  Report Type: 
  Country: None (occurrence: None)
  Receive Date: 20111108
  Receipt Date: 20111028
  Transmission Date: 20120403
  Serious: Yes (Death, Congenital Anomaly)
  Sender: FDA-Public Use
  Company Number: DK-JNJFOC-20100604504

PATIENT
  Sex: Female

DRUGS (1)
  1. REMICADE [Suspect]
     Indication: EXPOSURE VIA FATHER
     Dosage: 0, 2. 6 WEEKS.
     Route: 064
     Dates: start: 20080502

REACTIONS (1)
  - VENTRICULAR HYPOPLASIA [None]
